FAERS Safety Report 13875177 (Version 1)
Quarter: 2017Q3

REPORT INFORMATION
  Report Type: Spontaneous
  Country: RS (occurrence: RS)
  Receive Date: 20170816
  Receipt Date: 20170816
  Transmission Date: 20171127
  Serious: Yes (Hospitalization, Other)
  Sender: FDA-Public Use
  Company Number: RS-MYLANLABS-2017M1049169

PATIENT
  Age: 51 Year
  Sex: Male
  Weight: 80 kg

DRUGS (2)
  1. LEPONEX [Suspect]
     Active Substance: CLOZAPINE
     Indication: SCHIZOPHRENIA
     Dosage: 200 MG, UNK
     Route: 048
     Dates: start: 2000, end: 20170719
  2. DIAZEPAM. [Concomitant]
     Active Substance: DIAZEPAM
     Indication: ANXIETY
     Dosage: UNK
     Route: 048

REACTIONS (12)
  - Thrombocytopenia [Unknown]
  - Somnolence [Unknown]
  - Acute myocardial infarction [Recovering/Resolving]
  - Tachycardia [Unknown]
  - Anaemia [Unknown]
  - Brain contusion [Unknown]
  - Fall [Unknown]
  - Hypotension [Unknown]
  - Coma [Unknown]
  - Septic shock [Unknown]
  - Eating disorder [Unknown]
  - Leukopenia [Unknown]

NARRATIVE: CASE EVENT DATE: 2017
